FAERS Safety Report 18106939 (Version 7)
Quarter: 2024Q4

REPORT INFORMATION
  Report Type: Spontaneous
  Country: RO (occurrence: RO)
  Receive Date: 20200803
  Receipt Date: 20241009
  Transmission Date: 20250114
  Serious: Yes (Hospitalization, Other)
  Sender: NOVARTIS
  Company Number: NVSC2020RO214658

PATIENT
  Age: 56 Year
  Sex: Female

DRUGS (16)
  1. ELTROMBOPAG [Suspect]
     Active Substance: ELTROMBOPAG
     Indication: Immune thrombocytopenia
     Dosage: UNK
     Route: 065
  2. ASPIRIN [Interacting]
     Active Substance: ASPIRIN
     Indication: Acute myocardial infarction
     Dosage: UNK
     Route: 065
  3. ASPIRIN [Interacting]
     Active Substance: ASPIRIN
     Indication: Thrombosis prophylaxis
  4. DABIGATRAN [Suspect]
     Active Substance: DABIGATRAN
     Indication: Thrombosis prophylaxis
     Dosage: 150 MG, BID
     Route: 048
  5. DABIGATRAN [Suspect]
     Active Substance: DABIGATRAN
     Indication: Deep vein thrombosis
     Dosage: 300 MG, QD (150 MG, 2X PER DAY)
     Route: 016
  6. DABIGATRAN [Suspect]
     Active Substance: DABIGATRAN
     Indication: Acute myocardial infarction
  7. ENOXAPARIN [Suspect]
     Active Substance: ENOXAPARIN
     Indication: Product used for unknown indication
     Dosage: UNK
     Route: 065
  8. CLOPIDOGREL [Interacting]
     Active Substance: CLOPIDOGREL BISULFATE
     Indication: Acute myocardial infarction
     Dosage: UNK
     Route: 065
  9. CLOPIDOGREL [Interacting]
     Active Substance: CLOPIDOGREL BISULFATE
     Indication: Thrombosis prophylaxis
  10. ARIXTRA [Interacting]
     Active Substance: FONDAPARINUX SODIUM
     Indication: Embolism venous
     Dosage: 7.5 MG, QD
     Route: 065
  11. ARIXTRA [Interacting]
     Active Substance: FONDAPARINUX SODIUM
     Indication: Thrombocytopenia
     Dosage: 2.5 MG, QD
     Route: 065
  12. HEPARIN [Suspect]
     Active Substance: HEPARIN SODIUM
     Indication: Deep vein thrombosis
     Dosage: UNK
     Route: 042
  13. DEXAMETHASONE [Concomitant]
     Active Substance: DEXAMETHASONE
     Indication: Product used for unknown indication
     Dosage: UNK
     Route: 065
  14. PLATELETS [Concomitant]
     Active Substance: HUMAN PLATELET, ALLOGENIC
     Indication: Product used for unknown indication
     Dosage: UNK
     Route: 065
  15. PLATELETS [Concomitant]
     Active Substance: HUMAN PLATELET, ALLOGENIC
     Route: 065
  16. PLATELETS [Concomitant]
     Active Substance: HUMAN PLATELET, ALLOGENIC
     Route: 065

REACTIONS (12)
  - Angina pectoris [Recovered/Resolved]
  - Chest pain [Unknown]
  - Acute myocardial infarction [Unknown]
  - Heavy menstrual bleeding [Recovered/Resolved]
  - Deep vein thrombosis [Recovered/Resolved]
  - Thrombocytopenia [Recovering/Resolving]
  - Uterine haemorrhage [Recovered/Resolved]
  - Off label use [Unknown]
  - Labelled drug-drug interaction medication error [Unknown]
  - Thrombosis [Recovered/Resolved]
  - Drug ineffective [Unknown]
  - Pulmonary embolism [Recovered/Resolved]
